FAERS Safety Report 16080776 (Version 3)
Quarter: 2019Q2

REPORT INFORMATION
  Report Type: Report from Study
  Country: None (occurrence: US)
  Receive Date: 20190316
  Receipt Date: 20190502
  Transmission Date: 20190711
  Serious: Yes (Other)
  Sender: FDA-Public Use
  Company Number: US-ABBVIE-19K-163-2700250-00

PATIENT
  Age: 66 Year
  Sex: Male
  Weight: 115.77 kg

DRUGS (17)
  1. ZYLOPRIM [Concomitant]
     Active Substance: ALLOPURINOL
     Indication: PRODUCT USED FOR UNKNOWN INDICATION
     Dosage: QUANTITY 90 TABLETS?PRESCRIBED OCTOBER 21, 2018
     Route: 048
  2. LIPITOR [Concomitant]
     Active Substance: ATORVASTATIN CALCIUM
     Indication: PRODUCT USED FOR UNKNOWN INDICATION
     Dosage: QUANTITY 90 TABLETS?PRESCRIBED JUNE 20, 201S
     Route: 048
  3. DEMADEX [Concomitant]
     Active Substance: TORSEMIDE
     Indication: PRODUCT USED FOR UNKNOWN INDICATION
     Dosage: QUANTITY 180 TABLETS?PRESCRIBED APRIL 15, 2019
     Route: 048
  4. APPLE CIDER VINEGAR [Concomitant]
     Active Substance: APPLE CIDER VINEGAR
     Indication: PRODUCT USED FOR UNKNOWN INDICATION
     Route: 048
  5. NORVASC [Concomitant]
     Active Substance: AMLODIPINE BESYLATE
     Indication: PRODUCT USED FOR UNKNOWN INDICATION
     Dosage: QUANTITY 90 TABLETS?PRESCRIBED SEPTEMBER 21, 201 S
     Route: 048
  6. HUMALOG [Concomitant]
     Active Substance: INSULIN LISPRO
     Indication: PRODUCT USED FOR UNKNOWN INDICATION
     Dosage: QUANTITY 15 PENS 200 UNIT/ML?PRESCRIBED OCTOBER 30, 2017
     Route: 058
  7. KIRKLAND SIGNATURE ALLERCLEAR [Concomitant]
     Active Substance: LORATADINE
     Indication: PRODUCT USED FOR UNKNOWN INDICATION
     Route: 048
  8. BENZONATATE. [Concomitant]
     Active Substance: BENZONATATE
     Indication: PRODUCT USED FOR UNKNOWN INDICATION
     Dosage: QUANTITY 50 CAPSULES?PRESCRIBED APRIL 3, 2019
     Route: 048
  9. DITROPAN [Concomitant]
     Active Substance: OXYBUTYNIN CHLORIDE
     Indication: PRODUCT USED FOR UNKNOWN INDICATION
     Dosage: QUANTITY 90 TABLETS?PRESCRIBED MARCH 11, 2019
     Route: 048
  10. HUMIRA [Suspect]
     Active Substance: ADALIMUMAB
     Indication: HIDRADENITIS
     Dosage: HUMIRA CITRATE FREE PEN
     Route: 058
  11. XALATAN [Concomitant]
     Active Substance: LATANOPROST
     Indication: PRODUCT USED FOR UNKNOWN INDICATION
     Dosage: OPHTHALMIC SOLUTION?0.005%
     Dates: start: 20190330
  12. FLONASE [Concomitant]
     Active Substance: FLUTICASONE PROPIONATE
     Indication: PRODUCT USED FOR UNKNOWN INDICATION
     Dosage: SPRAY?QUANTITY 3 BOTTLES?PRESCRIBED APRIL 3, 2019
     Route: 045
  13. COZAAR [Concomitant]
     Active Substance: LOSARTAN POTASSIUM
     Indication: PRODUCT USED FOR UNKNOWN INDICATION
     Dosage: QUANTITY 30 TABLETS?PRESCRIBED MARCH 27, 2019
     Route: 048
  14. LANTUS XR [Concomitant]
     Active Substance: INSULIN GLARGINE
     Indication: PRODUCT USED FOR UNKNOWN INDICATION
     Dosage: LANTUS SOLOSTAR U-100 INSULIN 100 UNIT/ML (3 ML) LNPN-INSULIN GLARGINE?Q- 75 ML
     Route: 058
  15. ZAROXOLYN [Concomitant]
     Active Substance: METOLAZONE
     Indication: WEIGHT INCREASED
     Dosage: QUANTITY 30 TABLETS?PRESCRIBED MARCH 27, 2019
     Route: 048
  16. COREG [Concomitant]
     Active Substance: CARVEDILOL
     Indication: PRODUCT USED FOR UNKNOWN INDICATION
     Dosage: QUANTITY 180 TABLETS?PRESCRIBED FEBRUARY 17, 2019
     Route: 048
  17. GLUCOTROL [Concomitant]
     Active Substance: GLIPIZIDE
     Indication: PRODUCT USED FOR UNKNOWN INDICATION
     Dosage: QUANTITY 60 TABLETS?BEFORE MEAL?PRESCRIBED APRIL 3, 2019
     Route: 048

REACTIONS (5)
  - Basal cell carcinoma [Unknown]
  - Cardiac failure congestive [Recovering/Resolving]
  - Furuncle [Recovering/Resolving]
  - Acrochordon [Unknown]
  - Pericardial effusion [Unknown]

NARRATIVE: CASE EVENT DATE: 20190324
